FAERS Safety Report 5202708-7 (Version None)
Quarter: 2006Q4

REPORT INFORMATION
  Report Type: 
  Country: None (occurrence: None)
  Receive Date: 20061016
  Receipt Date: 20060825
  Transmission Date: 20070319
  Serious: No
  Sender: FDA-Public Use
  Company Number: 2006SP003126

PATIENT
  Age: 40 Year
  Sex: Female
  Weight: 54.4316 kg

DRUGS (13)
  1. LUNESTA [Suspect]
     Indication: INSOMNIA
     Dosage: 3 MG;ORAL;3 MG;ORAL; 4 MG;ORAL
     Route: 048
     Dates: start: 20060101, end: 20060101
  2. LUNESTA [Suspect]
     Indication: INSOMNIA
     Dosage: 3 MG;ORAL;3 MG;ORAL; 4 MG;ORAL
     Route: 048
     Dates: start: 20060323, end: 20060501
  3. LUNESTA [Suspect]
     Indication: INSOMNIA
     Dosage: 3 MG;ORAL;3 MG;ORAL; 4 MG;ORAL
     Route: 048
     Dates: start: 20060810
  4. DOSTINEX [Concomitant]
  5. SYNTHROID [Concomitant]
  6. METFORMIN HCL [Concomitant]
  7. WELLBUTRIN [Concomitant]
  8. LAMOTRIGINE [Concomitant]
  9. KLONOPIN [Concomitant]
  10. SOMA [Concomitant]
  11. VITAMINS, OTHER COMBINATIONS [Concomitant]
  12. NORETHINDRONE [Concomitant]
  13. SEX HORMONES AND MODULATORS OF THE GENI. SYS. [Concomitant]

REACTIONS (1)
  - MIDDLE INSOMNIA [None]
